FAERS Safety Report 5724580-9 (Version None)
Quarter: 2008Q2

REPORT INFORMATION
  Report Type: 
  Country: None (occurrence: None)
  Receive Date: 20080501
  Receipt Date: 20080421
  Transmission Date: 20081010
  Serious: Yes (Hospitalization, Other)
  Sender: FDA-Public Use
  Company Number: US-JNJFOC-20080405640

PATIENT
  Sex: Male
  Weight: 74.84 kg

DRUGS (8)
  1. DURAGESIC-100 [Suspect]
     Indication: NECK PAIN
     Route: 062
  2. DURAGESIC-100 [Suspect]
     Indication: BACK PAIN
     Route: 062
  3. FENTANYL TRANSDERMAL SYSTEM [Suspect]
     Indication: NECK PAIN
     Route: 062
  4. FENTANYL TRANSDERMAL SYSTEM [Suspect]
     Indication: BACK PAIN
     Route: 062
  5. TYLENOL [Concomitant]
     Indication: PAIN
     Route: 048
  6. OXYCODONE HCL [Concomitant]
     Indication: PAIN
     Dosage: 2 TABLETS EVERY 2-4 HOURS
     Route: 048
  7. AMITRIPTLINE HCL [Concomitant]
     Indication: SLEEP DISORDER
     Dosage: NIGHTLY
     Route: 048
  8. ASPIRIN [Concomitant]
     Route: 048

REACTIONS (7)
  - ARTERIAL OCCLUSIVE DISEASE [None]
  - ARTHROPATHY [None]
  - CATARACT [None]
  - EYE HAEMORRHAGE [None]
  - GASTRIC DISORDER [None]
  - HERNIA [None]
  - WRONG TECHNIQUE IN DRUG USAGE PROCESS [None]
